FAERS Safety Report 4626063-6 (Version None)
Quarter: 2005Q2

REPORT INFORMATION
  Report Type: 
  Country: None (occurrence: None)
  Receive Date: 20050404
  Receipt Date: 20050322
  Transmission Date: 20051028
  Serious: Yes (Hospitalization)
  Sender: FDA-Public Use
  Company Number: JP-MERCK-0503USA04718

PATIENT
  Age: 6 Year
  Sex: Female

DRUGS (3)
  1. TIMOPTIC [Suspect]
     Indication: GLAUCOMA
     Route: 047
     Dates: start: 20050317, end: 20050319
  2. AZOPT DROPS [Concomitant]
     Route: 047
     Dates: start: 20050317, end: 20050319
  3. XALATAN [Concomitant]
     Route: 047
     Dates: start: 20050317, end: 20050319

REACTIONS (3)
  - ASCITES [None]
  - OEDEMA [None]
  - PLEURAL EFFUSION [None]
